FAERS Safety Report 5488781-X (Version None)
Quarter: 2007Q4

REPORT INFORMATION
  Report Type: 
  Country: None (occurrence: None)
  Receive Date: 20071017
  Receipt Date: 20071006
  Transmission Date: 20080405
  Serious: Yes (Other)
  Sender: FDA-Public Use
  Company Number: US-PFIZER INC-2007068459

PATIENT
  Sex: Female
  Weight: 65.3 kg

DRUGS (4)
  1. CHANTIX [Suspect]
     Indication: SMOKING CESSATION THERAPY
     Route: 048
     Dates: start: 20070722, end: 20070801
  2. CHANTIX [Suspect]
     Indication: NICOTINE DEPENDENCE
  3. ZOLOFT [Suspect]
     Indication: PANIC DISORDER
     Route: 048
     Dates: start: 20041101
  4. XANAX [Concomitant]

REACTIONS (10)
  - AGITATION [None]
  - ANOREXIA [None]
  - DIARRHOEA [None]
  - GASTROINTESTINAL DISORDER [None]
  - INSOMNIA [None]
  - MUSCLE TIGHTNESS [None]
  - NAUSEA [None]
  - PANIC ATTACK [None]
  - SEROTONIN SYNDROME [None]
  - TREMOR [None]
